FAERS Safety Report 8429482-5 (Version None)
Quarter: 2012Q2

REPORT INFORMATION
  Report Type: 
  Country: None (occurrence: None)
  Receive Date: 20120323
  Receipt Date: 20110420
  Transmission Date: 20120825
  Serious: Yes (Other)
  Sender: FDA-Public Use
  Company Number: 163-21880-11042983

PATIENT
  Age: 49 Year
  Sex: Female

DRUGS (4)
  1. DEXAMETHASONE [Concomitant]
  2. REVLIMID [Suspect]
     Indication: MULTIPLE MYELOMA
     Dosage: 10 MG, 1 IN 1 D, PO ; 25 MG, DAILY X 21 DAYS, PO
     Route: 048
     Dates: start: 20071001
  3. REVLIMID [Suspect]
     Indication: MULTIPLE MYELOMA
     Dosage: 10 MG, 1 IN 1 D, PO ; 25 MG, DAILY X 21 DAYS, PO
     Route: 048
     Dates: start: 20100701
  4. MULTI-VITAMINS [Concomitant]

REACTIONS (1)
  - NEUROPATHY PERIPHERAL [None]
